FAERS Safety Report 15735021 (Version 1)
Quarter: 2018Q4

REPORT INFORMATION
  Report Type: Spontaneous
  Country: US (occurrence: US)
  Receive Date: 20181218
  Receipt Date: 20181218
  Transmission Date: 20190205
  Serious: Yes (Hospitalization)
  Sender: FDA-Public Use
  Company Number: US-FERA PHARMACEUTICALS, LLC-2018PRG00284

PATIENT
  Age: 59 Year
  Sex: Female

DRUGS (3)
  1. PREDNISONE. [Concomitant]
     Active Substance: PREDNISONE
     Route: 065
  2. DEXAMETHASONE. [Suspect]
     Active Substance: DEXAMETHASONE
     Indication: SCLERITIS
     Dosage: UNK, ONCE
     Route: 031
  3. IMMUNOMODULATORY THERAPY [Concomitant]
     Route: 065

REACTIONS (2)
  - Cataract traumatic [Recovered/Resolved]
  - Product administered at inappropriate site [Recovered/Resolved]
